FAERS Safety Report 6770849-9 (Version None)
Quarter: 2010Q2

REPORT INFORMATION
  Report Type: 
  Country: None (occurrence: None)
  Receive Date: 20100614
  Receipt Date: 20100614
  Transmission Date: 20101027
  Serious: Yes (Hospitalization)
  Sender: FDA-Public Use
  Company Number: None

PATIENT
  Sex: Female
  Weight: 107.7 kg

DRUGS (2)
  1. CISPLATIN [Suspect]
     Dosage: 150 MG
  2. TAXOL [Suspect]
     Dosage: 390 MG

REACTIONS (5)
  - ABDOMINAL WALL ABSCESS [None]
  - CULTURE WOUND POSITIVE [None]
  - DEHYDRATION [None]
  - ESCHERICHIA INFECTION [None]
  - RENAL FAILURE ACUTE [None]
